FAERS Safety Report 6692711-2 (Version None)
Quarter: 2010Q2

REPORT INFORMATION
  Report Type: 
  Country: None (occurrence: None)
  Receive Date: 20100419
  Receipt Date: 20100406
  Transmission Date: 20101027
  Serious: Yes (Hospitalization)
  Sender: FDA-Public Use
  Company Number: 2010AL002020

PATIENT
  Age: 5 Year
  Sex: Female
  Weight: 19.4 kg

DRUGS (7)
  1. IBUPROFEN [Suspect]
     Indication: FEBRILE CONVULSION
     Dosage: 5 MG/KG; Q8H; PO
     Route: 048
  2. IBUPROFEN [Suspect]
     Indication: FEBRILE INFECTION
     Dosage: 5 MG/KG; Q8H; PO
     Route: 048
  3. IBUPROFEN [Suspect]
     Indication: VOMITING
     Dosage: 5 MG/KG; Q8H; PO
     Route: 048
  4. ACETAMINOPHEN [Suspect]
     Indication: FEBRILE CONVULSION
     Dosage: 11 MG/KG;PO
     Route: 048
  5. ACETAMINOPHEN [Suspect]
     Indication: FEBRILE INFECTION
     Dosage: 11 MG/KG;PO
     Route: 048
  6. ACETAMINOPHEN [Suspect]
     Indication: VOMITING
     Dosage: 11 MG/KG;PO
     Route: 048
  7. DIAZEPAM [Concomitant]

REACTIONS (13)
  - ALPHA 1 GLOBULIN INCREASED [None]
  - BLOOD ALBUMIN DECREASED [None]
  - BLOOD FIBRINOGEN INCREASED [None]
  - BLOOD SODIUM DECREASED [None]
  - DEHYDRATION [None]
  - FEBRILE CONVULSION [None]
  - FIBRIN D DIMER INCREASED [None]
  - HEPATITIS CHOLESTATIC [None]
  - HYPERTENSION [None]
  - KIDNEY ENLARGEMENT [None]
  - RED BLOOD CELL SEDIMENTATION RATE INCREASED [None]
  - RENAL FAILURE ACUTE [None]
  - VOMITING [None]
